FAERS Safety Report 12249094 (Version 1)
Quarter: 2016Q2

REPORT INFORMATION
  Report Type: Spontaneous
  Country: US (occurrence: None)
  Receive Date: 20160407
  Receipt Date: 20160407
  Transmission Date: 20160815
  Serious: Yes (Hospitalization)
  Sender: FDA-Public Use
  Company Number: None

PATIENT
  Age: 44 Year
  Sex: Female
  Weight: 88 kg

DRUGS (2)
  1. DEXAMETHASONE. [Concomitant]
     Active Substance: DEXAMETHASONE
  2. BEVACIZUMAB (RHUMAB VEGF) [Suspect]
     Active Substance: BEVACIZUMAB
     Dates: end: 20160223

REACTIONS (9)
  - Fall [None]
  - Performance status decreased [None]
  - Respiratory tract infection [None]
  - Fatigue [None]
  - Confusional state [None]
  - Hospice care [None]
  - Asthenia [None]
  - Wheelchair user [None]
  - Head injury [None]

NARRATIVE: CASE EVENT DATE: 20160307
